FAERS Safety Report 25597803 (Version 1)
Quarter: 2025Q3

REPORT INFORMATION
  Report Type: Report from Study
  Country: AU (occurrence: AU)
  Receive Date: 20250723
  Receipt Date: 20250723
  Transmission Date: 20251021
  Serious: Yes (Other)
  Sender: NOVARTIS
  Company Number: AU-002147023-NVSC2025AU103472

PATIENT
  Age: 66 Year
  Sex: Female

DRUGS (3)
  1. KESIMPTA [Suspect]
     Active Substance: OFATUMUMAB
     Indication: Relapsing-remitting multiple sclerosis
     Dosage: 20 MG, QW
     Route: 058
     Dates: start: 20250620
  2. KESIMPTA [Suspect]
     Active Substance: OFATUMUMAB
     Dosage: 20 MG, BIW (ONCE EVERY TWO WEEKS)
     Route: 058
  3. KESIMPTA [Suspect]
     Active Substance: OFATUMUMAB
     Route: 065
     Dates: start: 20250718

REACTIONS (5)
  - Lower respiratory tract infection [Unknown]
  - Influenza like illness [Unknown]
  - Back pain [Unknown]
  - Nausea [Unknown]
  - Taste disorder [Unknown]

NARRATIVE: CASE EVENT DATE: 20250601
